FAERS Safety Report 12608261 (Version 1)
Quarter: 2016Q3

REPORT INFORMATION
  Report Type: Report from Study
  Country: US (occurrence: US)
  Receive Date: 20160729
  Receipt Date: 20160729
  Transmission Date: 20161109
  Serious: Yes (Other)
  Sender: FDA-Public Use
  Company Number: US-ABBVIE-16K-163-1681917-00

PATIENT
  Sex: Male

DRUGS (5)
  1. HUMIRA [Suspect]
     Active Substance: ADALIMUMAB
     Dosage: WEANING OFF
     Route: 058
     Dates: start: 2016
  2. FLONASE [Concomitant]
     Active Substance: FLUTICASONE PROPIONATE
     Indication: PRODUCT USED FOR UNKNOWN INDICATION
  3. METHOTREXATE. [Suspect]
     Active Substance: METHOTREXATE
     Indication: PRODUCT USED FOR UNKNOWN INDICATION
     Route: 065
  4. HUMIRA [Suspect]
     Active Substance: ADALIMUMAB
     Indication: RHEUMATOID ARTHRITIS
     Route: 058
     Dates: start: 2008
  5. HUMIRA [Suspect]
     Active Substance: ADALIMUMAB
     Route: 058
     Dates: start: 2016, end: 2016

REACTIONS (14)
  - Renal function test abnormal [Recovered/Resolved]
  - Anxiety [Unknown]
  - Drug ineffective [Unknown]
  - Dysgeusia [Unknown]
  - Infection [Unknown]
  - Liver function test increased [Recovered/Resolved]
  - Foot deformity [Recovered/Resolved]
  - Adventitial cystic disease [Recovered/Resolved]
  - Rheumatoid arthritis [Unknown]
  - Injection site bruising [Unknown]
  - Drug dose omission [Unknown]
  - Stomatitis [Unknown]
  - Inappropriate schedule of drug administration [Unknown]
  - Injection site pain [Unknown]
